FAERS Safety Report 11801891 (Version 1)
Quarter: 2015Q4

REPORT INFORMATION
  Report Type: Spontaneous
  Country: US (occurrence: None)
  Receive Date: 20151203
  Receipt Date: 20151203
  Transmission Date: 20160305
  Serious: Yes (Hospitalization)
  Sender: FDA-Public Use
  Company Number: None

PATIENT
  Age: 43 Year
  Sex: Female
  Weight: 95.7 kg

DRUGS (1)
  1. CYTARABINE. [Suspect]
     Active Substance: CYTARABINE
     Dates: end: 20151106

REACTIONS (7)
  - Hypotension [None]
  - Pulmonary oedema [None]
  - Febrile neutropenia [None]
  - Acute kidney injury [None]
  - Respiratory failure [None]
  - Sepsis [None]
  - Fungal infection [None]

NARRATIVE: CASE EVENT DATE: 20151117
